FAERS Safety Report 5419125-7 (Version None)
Quarter: 2007Q3

REPORT INFORMATION
  Report Type: 
  Country: None (occurrence: None)
  Receive Date: 20070820
  Receipt Date: 20070816
  Transmission Date: 20080115
  Serious: Yes (Life-Threatening, Hospitalization)
  Sender: FDA-Public Use
  Company Number: PHEH2007US09604

PATIENT
  Sex: Female

DRUGS (3)
  1. ZELNORM [Suspect]
     Indication: CONSTIPATION
     Dosage: 6 MG, BID
     Route: 048
     Dates: start: 20040126, end: 20070302
  2. OXYCONTIN [Concomitant]
  3. PLAVIX [Concomitant]

REACTIONS (3)
  - CARDIAC PACEMAKER INSERTION [None]
  - PYREXIA [None]
  - STAPHYLOCOCCAL INFECTION [None]
